FAERS Safety Report 23155028 (Version 1)
Quarter: 2023Q4

REPORT INFORMATION
  Report Type: Report from Study
  Country: US (occurrence: US)
  Receive Date: 20231107
  Receipt Date: 20231107
  Transmission Date: 20240110
  Serious: Yes (Hospitalization)
  Sender: FDA-Public Use
  Company Number: US-ARGENX-2023-ARGX-US000409

PATIENT

DRUGS (1)
  1. VYVGART [Suspect]
     Active Substance: EFGARTIGIMOD ALFA-FCAB
     Indication: Myasthenia gravis
     Dosage: 10 MG/KG, 1/WEEK
     Route: 042
     Dates: start: 20230112

REACTIONS (9)
  - Fall [Unknown]
  - Cervical vertebral fracture [Unknown]
  - Hyperhidrosis [Unknown]
  - Erectile dysfunction [Unknown]
  - Diarrhoea [Recovered/Resolved]
  - Ageusia [Unknown]
  - Muscle spasms [Unknown]
  - Diplopia [Recovering/Resolving]
  - Muscle spasms [Recovering/Resolving]

NARRATIVE: CASE EVENT DATE: 20230101
